FAERS Safety Report 8917028 (Version 3)
Quarter: 2012Q4

REPORT INFORMATION
  Report Type: 
  Country: BR (occurrence: BR)
  Receive Date: 20121120
  Receipt Date: 20121221
  Transmission Date: 20130627
  Serious: Yes (Hospitalization, Other)
  Sender: FDA-Public Use
  Company Number: BR-BRISTOL-MYERS SQUIBB COMPANY-17014267

PATIENT
  Age: 24 Year
  Sex: Female

DRUGS (4)
  1. BECENUN [Suspect]
     Indication: HODGKIN^S DISEASE
     Dates: start: 20120529
  2. ETOPOSIDE [Suspect]
     Indication: HODGKIN^S DISEASE
     Dates: start: 20120529
  3. CYTARABINE [Suspect]
     Indication: HODGKIN^S DISEASE
     Dates: start: 20120529
  4. MELPHALAN [Suspect]
     Indication: HODGKIN^S DISEASE
     Dates: start: 20120529

REACTIONS (6)
  - Lung disorder [Unknown]
  - Cystitis haemorrhagic [Recovering/Resolving]
  - Clostridium difficile colitis [Recovering/Resolving]
  - Colitis [Recovering/Resolving]
  - Pleural effusion [Recovering/Resolving]
  - Pericardial effusion [Recovering/Resolving]
